FAERS Safety Report 7141239-4 (Version None)
Quarter: 2010Q4

REPORT INFORMATION
  Report Type: 
  Country: None (occurrence: None)
  Receive Date: 20101203
  Receipt Date: 20101203
  Transmission Date: 20110411
  Serious: Yes (Hospitalization)
  Sender: FDA-Public Use
  Company Number: None

PATIENT
  Age: 46 Year
  Sex: Male
  Weight: 59 kg

DRUGS (1)
  1. PIROXICAM [Suspect]
     Indication: PAIN
     Dosage: 20 MG EVERY DAY PO
     Route: 048
     Dates: start: 20091219, end: 20100130

REACTIONS (4)
  - DIVERTICULUM [None]
  - DUODENAL ULCER [None]
  - GASTRITIS [None]
  - OESOPHAGITIS [None]
